FAERS Safety Report 15407264 (Version 2)
Quarter: 2018Q4

REPORT INFORMATION
  Report Type: Spontaneous
  Country: US (occurrence: US)
  Receive Date: 20180920
  Receipt Date: 20181228
  Transmission Date: 20190204
  Serious: No
  Sender: FDA-Public Use
  Company Number: US-SA-2018SA261298

PATIENT
  Age: 33 Year
  Sex: Female

DRUGS (1)
  1. LUMIZYME [Suspect]
     Active Substance: ALGLUCOSIDASE ALFA
     Dosage: UNK, UNK
     Route: 041
     Dates: start: 201702

REACTIONS (5)
  - Flushing [Unknown]
  - Chest discomfort [Unknown]
  - Headache [Unknown]
  - Blood immunoglobulin E [Unknown]
  - Feeling hot [Unknown]

NARRATIVE: CASE EVENT DATE: 20180910
